FAERS Safety Report 9583718 (Version 2)
Quarter: 2013Q4

REPORT INFORMATION
  Report Type: Spontaneous
  Country: US (occurrence: US)
  Receive Date: 20131002
  Receipt Date: 20131002
  Transmission Date: 20140711
  Serious: No
  Sender: FDA-Public Use
  Company Number: US-AMGEN-USASP2013040453

PATIENT
  Age: 48 Year
  Sex: Female

DRUGS (13)
  1. ENBREL [Suspect]
     Indication: PSORIATIC ARTHROPATHY
     Dosage: 50 MG, 2 TIMES/WK
     Route: 065
     Dates: start: 20130331
  2. ENBREL [Suspect]
     Indication: PSORIASIS
  3. HUMIRA [Suspect]
     Dosage: UNK
  4. CLOBETASOL 0.05% [Concomitant]
     Dosage: UNK
     Route: 061
  5. CLOBEX                             /00012002/ [Concomitant]
     Dosage: UNK
  6. VECTICAL [Concomitant]
     Dosage: UNK
  7. LISINOPRIL [Concomitant]
     Dosage: UNK
  8. GEMFIBROZIL [Concomitant]
     Dosage: UNK
  9. METOPROLOL [Concomitant]
     Dosage: UNK
  10. LYRICA [Concomitant]
     Dosage: UNK
  11. LEVOTHYROXIN [Concomitant]
     Dosage: UNK
  12. MACRODANTIN [Concomitant]
     Indication: URINARY TRACT INFECTION
     Dosage: UNK
  13. KLONOPIN [Concomitant]
     Dosage: UNK

REACTIONS (10)
  - Drug ineffective [Not Recovered/Not Resolved]
  - Skin plaque [Not Recovered/Not Resolved]
  - Pain [Not Recovered/Not Resolved]
  - Joint stiffness [Not Recovered/Not Resolved]
  - Local swelling [Recovered/Resolved]
  - Liver function test abnormal [Unknown]
  - Rash [Unknown]
  - Arthralgia [Unknown]
  - Nail pitting [Not Recovered/Not Resolved]
  - Leukopenia [Unknown]
